FAERS Safety Report 9522292 (Version 2)
Quarter: 2014Q4

REPORT INFORMATION
  Report Type: Spontaneous
  Country: US (occurrence: US)
  Receive Date: 20130913
  Receipt Date: 20141010
  Transmission Date: 20150529
  Serious: Yes (Hospitalization)
  Sender: FDA-Public Use
  Company Number: US-BAYER-2013-110496

PATIENT
  Age: 28 Year
  Sex: Female
  Weight: 74.83 kg

DRUGS (1)
  1. MIRENA [Suspect]
     Active Substance: LEVONORGESTREL
     Indication: CONTRACEPTION
     Dosage: 20 MCG/24HR, CONT
     Route: 015
     Dates: start: 20080414, end: 20120224

REACTIONS (6)
  - Injury [None]
  - Pain [None]
  - Gastrointestinal injury [None]
  - Device failure [None]
  - Uterine perforation [None]
  - Procedural pain [None]

NARRATIVE: CASE EVENT DATE: 2012
